FAERS Safety Report 9472174 (Version 3)
Quarter: 2013Q4

REPORT INFORMATION
  Report Type: Report from Study
  Country: US (occurrence: US)
  Receive Date: 20130823
  Receipt Date: 20131205
  Transmission Date: 20140711
  Serious: Yes (Other)
  Sender: FDA-Public Use
  Company Number: US-ROCHE-1264738

PATIENT
  Age: 41 Year
  Sex: Male

DRUGS (3)
  1. COPEGUS [Suspect]
     Indication: HEPATITIS C
     Route: 048
     Dates: start: 20130708
  2. COPEGUS [Suspect]
     Route: 048
     Dates: start: 20130815
  3. PEGASYS [Suspect]
     Indication: HEPATITIS C
     Dosage: 180MCG 0.5ML 1 INJECTION Q MONDAY MORNING
     Route: 058
     Dates: start: 20130708

REACTIONS (18)
  - Syncope [Not Recovered/Not Resolved]
  - Haemoglobin decreased [Not Recovered/Not Resolved]
  - Malaise [Not Recovered/Not Resolved]
  - Fatigue [Not Recovered/Not Resolved]
  - Pallor [Not Recovered/Not Resolved]
  - Dyspnoea [Not Recovered/Not Resolved]
  - Dizziness [Not Recovered/Not Resolved]
  - Nausea [Not Recovered/Not Resolved]
  - Pain [Not Recovered/Not Resolved]
  - Influenza like illness [Not Recovered/Not Resolved]
  - Overdose [Unknown]
  - Malaise [Not Recovered/Not Resolved]
  - Gastric disorder [Unknown]
  - Vomiting [Unknown]
  - Staphylococcal infection [Unknown]
  - Hypertension [Unknown]
  - Epistaxis [Unknown]
  - Irritability [Unknown]
